FAERS Safety Report 9874475 (Version 1)
Quarter: 2014Q1

REPORT INFORMATION
  Report Type: Report from Study
  Country: IL (occurrence: IL)
  Receive Date: 20140206
  Receipt Date: 20140206
  Transmission Date: 20141002
  Serious: Yes (Hospitalization)
  Sender: FDA-Public Use
  Company Number: PHHY2014IL013655

PATIENT
  Age: 68 Year
  Sex: Male

DRUGS (2)
  1. SANDOSTATIN LAR [Suspect]
     Indication: CARCINOID TUMOUR
     Dosage: 30 MG, QW4
     Route: 030
     Dates: start: 20130306
  2. SANDOSTATIN LAR [Suspect]
     Dosage: 30 MG, QW4
     Route: 030
     Dates: start: 20140109

REACTIONS (2)
  - Full blood count decreased [Not Recovered/Not Resolved]
  - Coagulopathy [Not Recovered/Not Resolved]
